FAERS Safety Report 18211694 (Version 1)
Quarter: 2020Q3

REPORT INFORMATION
  Report Type: Spontaneous
  Country: FR (occurrence: FR)
  Receive Date: 20200831
  Receipt Date: 20200831
  Transmission Date: 20201103
  Serious: Yes (Death, Hospitalization)
  Sender: FDA-Public Use
  Company Number: FR-ACCORD-197883

PATIENT
  Age: 65 Year
  Sex: Male
  Weight: 93.5 kg

DRUGS (8)
  1. SIMVASTATIN. [Concomitant]
     Active Substance: SIMVASTATIN
  2. CISPLATIN. [Suspect]
     Active Substance: CISPLATIN
     Indication: RENAL NEOPLASM
     Route: 042
     Dates: start: 20180220, end: 20180220
  3. KARDEGIC [Concomitant]
     Active Substance: ASPIRIN DL-LYSINE
  4. METFORMIN [Concomitant]
     Active Substance: METFORMIN HYDROCHLORIDE
  5. RAMIPRIL. [Concomitant]
     Active Substance: RAMIPRIL
  6. LERCAN [Concomitant]
     Active Substance: LERCANIDIPINE
  7. PLAVIX [Concomitant]
     Active Substance: CLOPIDOGREL BISULFATE
  8. GEMZAR [Suspect]
     Active Substance: GEMCITABINE HYDROCHLORIDE
     Indication: RENAL NEOPLASM
     Route: 042
     Dates: start: 20180220, end: 20180220

REACTIONS (2)
  - Acute kidney injury [Recovered/Resolved with Sequelae]
  - Renal tubular necrosis [Recovered/Resolved with Sequelae]

NARRATIVE: CASE EVENT DATE: 20180227
